FAERS Safety Report 8823846 (Version 1)
Quarter: 2012Q4

REPORT INFORMATION
  Report Type: 
  Country: US (occurrence: US)
  Receive Date: 20121003
  Receipt Date: 20121003
  Transmission Date: 20130627
  Serious: Yes (Hospitalization)
  Sender: FDA-Public Use
  Company Number: US-MERCK-1210USA000799

PATIENT
  Age: 67 Year
  Sex: Female

DRUGS (1)
  1. JANUVIA [Suspect]
     Dosage: 1 DF, qd
     Route: 048

REACTIONS (3)
  - Pancreatitis [Unknown]
  - Vomiting [Unknown]
  - Abdominal pain [Unknown]
